FAERS Safety Report 19823062 (Version 1)
Quarter: 2021Q3

REPORT INFORMATION
  Report Type: Spontaneous
  Country: FR (occurrence: FR)
  Receive Date: 20210913
  Receipt Date: 20210913
  Transmission Date: 20211014
  Serious: Yes (Other)
  Sender: FDA-Public Use
  Company Number: FR-PFIZER INC-202101141910

PATIENT
  Age: 27 Year
  Sex: Male

DRUGS (2)
  1. CANNABIS [Suspect]
     Active Substance: CANNABIS SATIVA SUBSP. INDICA TOP
     Dosage: 3 DF, 1X/DAY
     Route: 055
  2. LYRICA [Suspect]
     Active Substance: PREGABALIN
     Dosage: 4 DF, 1X/DAY
     Route: 048
     Dates: start: 2017

REACTIONS (4)
  - Drug withdrawal syndrome [Recovering/Resolving]
  - Anhedonia [Recovering/Resolving]
  - Drug dependence [Recovering/Resolving]
  - Insomnia [Recovering/Resolving]

NARRATIVE: CASE EVENT DATE: 2017
